FAERS Safety Report 12434983 (Version 1)
Quarter: 2016Q2

REPORT INFORMATION
  Report Type: Spontaneous
  Country: US (occurrence: US)
  Receive Date: 20160603
  Receipt Date: 20160603
  Transmission Date: 20160815
  Serious: No
  Sender: FDA-Public Use
  Company Number: US-ROCHE-1582305

PATIENT
  Sex: Female
  Weight: 73.03 kg

DRUGS (7)
  1. VITAMIN C [Concomitant]
     Active Substance: ASCORBIC ACID
     Route: 065
  2. NEURONTIN [Concomitant]
     Active Substance: GABAPENTIN
  3. OMEPRAZOL [Concomitant]
     Active Substance: OMEPRAZOLE
  4. ATIVAN [Concomitant]
     Active Substance: LORAZEPAM
     Route: 065
  5. XELODA [Suspect]
     Active Substance: CAPECITABINE
     Indication: BREAST CANCER
     Route: 065
  6. ALEVE [Concomitant]
     Active Substance: NAPROXEN SODIUM
  7. LORAZEPAM. [Concomitant]
     Active Substance: LORAZEPAM

REACTIONS (1)
  - Back pain [Unknown]
